FAERS Safety Report 20538201 (Version 1)
Quarter: 2022Q1

REPORT INFORMATION
  Report Type: Spontaneous
  Country: CN (occurrence: CN)
  Receive Date: 20220302
  Receipt Date: 20220302
  Transmission Date: 20220423
  Serious: Yes (Hospitalization, Other)
  Sender: FDA-Public Use
  Company Number: CN-MLMSERVICE-20210827-3075532-1

PATIENT
  Age: 54 Year
  Sex: Male

DRUGS (5)
  1. IBUPROFEN [Suspect]
     Active Substance: IBUPROFEN
     Indication: Gout
     Dosage: HIGH DOSE; IN TOTAL
     Route: 065
     Dates: start: 20201222, end: 20201222
  2. IBUPROFEN [Suspect]
     Active Substance: IBUPROFEN
     Indication: Hyperuricaemia
  3. ALLOPURINOL [Suspect]
     Active Substance: ALLOPURINOL
     Indication: Gout
     Dosage: HIGH DOSE; IN TOTAL
     Route: 065
     Dates: start: 20201222, end: 20201222
  4. ALLOPURINOL [Suspect]
     Active Substance: ALLOPURINOL
     Indication: Pain in extremity
  5. ALLOPURINOL [Suspect]
     Active Substance: ALLOPURINOL
     Indication: Hyperuricaemia

REACTIONS (3)
  - Tubulointerstitial nephritis [Recovered/Resolved]
  - Acute kidney injury [Recovered/Resolved]
  - Drug reaction with eosinophilia and systemic symptoms [Recovering/Resolving]

NARRATIVE: CASE EVENT DATE: 20201222
